FAERS Safety Report 12705693 (Version 1)
Quarter: 2016Q3

REPORT INFORMATION
  Report Type: Spontaneous
  Country: IT (occurrence: IT)
  Receive Date: 20160901
  Receipt Date: 20160901
  Transmission Date: 20161109
  Serious: Yes (Other)
  Sender: FDA-Public Use
  Company Number: IT-CIPLA LTD.-2016IT17680

PATIENT

DRUGS (15)
  1. TENOFOVIR [Suspect]
     Active Substance: TENOFOVIR
     Indication: HEPATITIS B
     Dosage: UNK
     Route: 065
     Dates: start: 200409, end: 200604
  2. EMTRICITABINE [Suspect]
     Active Substance: EMTRICITABINE
     Indication: HEPATITIS B
     Dosage: 200 MG, DAILY
     Route: 065
     Dates: start: 200807
  3. RITONAVIR. [Suspect]
     Active Substance: RITONAVIR
     Indication: HIV INFECTION
  4. LAMIVUDINE. [Suspect]
     Active Substance: LAMIVUDINE
     Indication: HIV INFECTION
  5. RITONAVIR. [Suspect]
     Active Substance: RITONAVIR
     Indication: HEPATITIS B
     Dosage: 200 MG, DAILY
     Route: 065
     Dates: start: 200807
  6. RALTEGRAVIR. [Suspect]
     Active Substance: RALTEGRAVIR
     Indication: HEPATITIS B
     Dosage: 800 MG, DAILY
     Route: 065
     Dates: start: 200807
  7. ENFUVIRTIDE [Suspect]
     Active Substance: ENFUVIRTIDE
     Indication: HEPATITIS B
     Dosage: 180 MG, DAILY
     Route: 065
     Dates: start: 200807
  8. ENFUVIRTIDE [Suspect]
     Active Substance: ENFUVIRTIDE
     Indication: HIV INFECTION
  9. EMTRICITABINE [Suspect]
     Active Substance: EMTRICITABINE
     Indication: HIV INFECTION
  10. DARUNAVIR [Suspect]
     Active Substance: DARUNAVIR
     Indication: HEPATITIS B
     Dosage: 1200 MG, DAILY
     Route: 065
     Dates: start: 200807
  11. LAMIVUDINE. [Suspect]
     Active Substance: LAMIVUDINE
     Indication: HEPATITIS B
     Dosage: UNK
     Route: 065
  12. TENOFOVIR [Suspect]
     Active Substance: TENOFOVIR
     Indication: HIV INFECTION
     Dosage: UNK
     Route: 065
     Dates: start: 200409, end: 200604
  13. TENOFOVIR [Suspect]
     Active Substance: TENOFOVIR
     Dosage: 245 MG, DAILY
     Route: 065
     Dates: start: 200807
  14. DARUNAVIR [Suspect]
     Active Substance: DARUNAVIR
     Indication: HIV INFECTION
  15. RALTEGRAVIR. [Suspect]
     Active Substance: RALTEGRAVIR
     Indication: HIV INFECTION

REACTIONS (10)
  - Cachexia [Unknown]
  - Abdominal lymphadenopathy [Unknown]
  - Disease recurrence [Unknown]
  - Treatment failure [Unknown]
  - Drug resistance [Unknown]
  - Treatment noncompliance [Unknown]
  - Immunodeficiency [Unknown]
  - Mycobacterium avium complex infection [Unknown]
  - Gastrointestinal disorder [Unknown]
  - Virologic failure [Unknown]
